FAERS Safety Report 20842873 (Version 1)
Quarter: 2022Q2

REPORT INFORMATION
  Report Type: Spontaneous
  Country: CA (occurrence: CA)
  Receive Date: 20220518
  Receipt Date: 20220518
  Transmission Date: 20220721
  Serious: Yes (Life-Threatening)
  Sender: FDA-Public Use
  Company Number: CA-BoehringerIngelheim-2022-BI-171203

PATIENT
  Age: 87 Year
  Sex: Male

DRUGS (3)
  1. JARDIANCE [Suspect]
     Active Substance: EMPAGLIFLOZIN
     Indication: Product used for unknown indication
  2. BASAGLAR [Suspect]
     Active Substance: INSULIN GLARGINE
     Indication: Product used for unknown indication
     Dosage: PEN, DISPOSABLE
     Route: 058
  3. INSULIN GLARGINE [Suspect]
     Active Substance: INSULIN GLARGINE
     Indication: Product used for unknown indication
     Dosage: (MIRIOPEN) (KWIKPEN) DEVICE , PEN, DISPOSABLE

REACTIONS (4)
  - Muscular weakness [Unknown]
  - Bradycardia [Unknown]
  - Asthenia [Unknown]
  - Hypoglycaemia [Unknown]
